FAERS Safety Report 15160612 (Version 2)
Quarter: 2018Q3

REPORT INFORMATION
  Report Type: Spontaneous
  Country: BR (occurrence: BR)
  Receive Date: 20180718
  Receipt Date: 20180801
  Transmission Date: 20181010
  Serious: Yes (Other)
  Sender: FDA-Public Use
  Company Number: BR-SA-2018SA012547

PATIENT
  Sex: Female

DRUGS (2)
  1. LANTUS SOLOSTAR [Suspect]
     Active Substance: INSULIN GLARGINE
     Indication: PANCREATIC DISORDER
     Dosage: 38 UNK, QD
     Route: 058
     Dates: start: 201712
  2. LANTUS [Suspect]
     Active Substance: INSULIN GLARGINE
     Indication: PRODUCT USED FOR UNKNOWN INDICATION
     Dosage: UNK
     Route: 058
     Dates: start: 201712

REACTIONS (5)
  - Chemotherapy [Unknown]
  - Hyperglycaemia [Unknown]
  - Medication error [Unknown]
  - Drug ineffective [Unknown]
  - Injection site pain [Recovered/Resolved]
